FAERS Safety Report 7500799-1 (Version None)
Quarter: 2011Q2

REPORT INFORMATION
  Report Type: 
  Country: None (occurrence: None)
  Receive Date: 20110524
  Receipt Date: 20110520
  Transmission Date: 20111010
  Serious: Yes (Death, Other)
  Sender: FDA-Public Use
  Company Number: PHEH2006US08858

PATIENT
  Sex: Male

DRUGS (17)
  1. ZOMETA [Suspect]
     Indication: BONE NEOPLASM MALIGNANT
  2. ERYTHROMYCIN [Concomitant]
     Dosage: UNK
     Dates: start: 20050101, end: 20050101
  3. INFLUENZA VIRUS VACCINE [Concomitant]
     Dosage: UNK
     Dates: start: 20030101
  4. OXYGEN THERAPY [Concomitant]
     Dosage: 2 L, UNK
  5. COSMOPEN [Concomitant]
  6. HORMONES AND RELATED AGENTS [Concomitant]
  7. ATROVENT [Concomitant]
     Indication: ASTHMA
     Dosage: UNK
  8. HYDROCHLOROTHIAZIDE [Concomitant]
     Dosage: 25 MG, QD
  9. ZOMETA [Suspect]
     Indication: PROSTATE CANCER METASTATIC
     Dosage: 4 MG, EVERY 4-6 WEEKS
     Dates: start: 20020101, end: 20050727
  10. ACETAMINOPHEN [Concomitant]
  11. DARVOCET-N 50 [Concomitant]
     Dosage: 100 MG Q6 HRS PRN
  12. ASPIRIN [Concomitant]
  13. PREDNISONE TAB [Concomitant]
     Indication: CHRONIC OBSTRUCTIVE PULMONARY DISEASE
  14. TAXOL + CARBOPLATIN [Concomitant]
     Indication: PROSTATE CANCER METASTATIC
  15. TAXOTERE [Concomitant]
     Indication: PROSTATE CANCER METASTATIC
     Dosage: 75 MG/M2, Q 3 WEEKS
     Dates: start: 20040929, end: 20060701
  16. CASODEX [Concomitant]
  17. ALBUTEROL SULFATE [Concomitant]
     Indication: ASTHMA
     Dosage: UNK

REACTIONS (44)
  - DIZZINESS [None]
  - VENTRICULAR HYPERTROPHY [None]
  - MITRAL VALVE INCOMPETENCE [None]
  - METASTASES TO LUNG [None]
  - CEREBROVASCULAR ACCIDENT [None]
  - BONE PAIN [None]
  - STOMATITIS [None]
  - WEIGHT DECREASED [None]
  - HAEMATURIA [None]
  - BREATH ODOUR [None]
  - ATAXIA [None]
  - CHRONIC OBSTRUCTIVE PULMONARY DISEASE [None]
  - TOOTH DISORDER [None]
  - ATELECTASIS [None]
  - METASTASES TO BONE [None]
  - DYSGEUSIA [None]
  - URINARY RETENTION [None]
  - TRICUSPID VALVE INCOMPETENCE [None]
  - OEDEMA [None]
  - CHEILITIS [None]
  - NEOPLASM MALIGNANT [None]
  - PROSTATIC SPECIFIC ANTIGEN INCREASED [None]
  - UPPER RESPIRATORY TRACT INFECTION [None]
  - ANGINA PECTORIS [None]
  - BRONCHITIS [None]
  - DIVERTICULUM [None]
  - ARRHYTHMIA SUPRAVENTRICULAR [None]
  - VENTRICULAR TACHYCARDIA [None]
  - SKIN REACTION [None]
  - TOOTH LOSS [None]
  - OSTEOMYELITIS [None]
  - MASTICATION DISORDER [None]
  - CELLULITIS [None]
  - BRADYCARDIA [None]
  - HEPATIC LESION [None]
  - OSTEONECROSIS OF JAW [None]
  - IMPAIRED HEALING [None]
  - LEFT VENTRICULAR DYSFUNCTION [None]
  - ASTHENIA [None]
  - PAIN [None]
  - INJURY [None]
  - ANXIETY [None]
  - BONE DISORDER [None]
  - ORAL CANDIDIASIS [None]
